FAERS Safety Report 13986122 (Version 3)
Quarter: 2018Q2

REPORT INFORMATION
  Report Type: Spontaneous
  Country: US (occurrence: US)
  Receive Date: 20170919
  Receipt Date: 20180601
  Transmission Date: 20180711
  Serious: No
  Sender: FDA-Public Use
  Company Number: PHEH2017US030131

PATIENT
  Sex: Female
  Weight: 45.35 kg

DRUGS (1)
  1. ZOFRAN [Suspect]
     Active Substance: ONDANSETRON HYDROCHLORIDE
     Indication: VOMITING IN PREGNANCY
     Dosage: 4 MG, QD
     Route: 048
     Dates: start: 20010920, end: 20020320

REACTIONS (4)
  - Maternal exposure during pregnancy [Unknown]
  - Emotional distress [Unknown]
  - Injury [Unknown]
  - Product use in unapproved indication [Unknown]
